FAERS Safety Report 5879883-4 (Version None)
Quarter: 2008Q3

REPORT INFORMATION
  Report Type: 
  Country: None (occurrence: None)
  Receive Date: 20080911
  Receipt Date: 20080911
  Transmission Date: 20090109
  Serious: Yes (Other)
  Sender: FDA-Public Use
  Company Number: None

PATIENT
  Sex: Female
  Weight: 81.6475 kg

DRUGS (1)
  1. NITROFURANTOIN [Suspect]

REACTIONS (3)
  - ANGER [None]
  - LUNG DISORDER [None]
  - SCAR [None]
